FAERS Safety Report 5677586-2 (Version None)
Quarter: 2008Q1

REPORT INFORMATION
  Report Type: 
  Country: None (occurrence: None)
  Receive Date: 20080324
  Receipt Date: 20080311
  Transmission Date: 20080703
  Serious: Yes (Other)
  Sender: FDA-Public Use
  Company Number: US-AMGEN-KDL269267

PATIENT
  Age: 83 Year
  Sex: Male
  Weight: 99.9 kg

DRUGS (8)
  1. EPOGEN [Suspect]
     Indication: RENAL FAILURE CHRONIC
  2. TENORMIN [Concomitant]
  3. VALIUM [Concomitant]
  4. IRON [Concomitant]
  5. ALTACE [Concomitant]
  6. VERAPAMIL [Concomitant]
  7. LASIX [Concomitant]
  8. IMDUR [Concomitant]

REACTIONS (6)
  - ANAEMIA [None]
  - BLOOD CREATININE INCREASED [None]
  - BLOOD PRESSURE INCREASED [None]
  - BONE PAIN [None]
  - GLAUCOMA [None]
  - PLATELET COUNT DECREASED [None]
